FAERS Safety Report 9445843 (Version 1)
Quarter: 2013Q3

REPORT INFORMATION
  Report Type: Spontaneous
  Country: GB (occurrence: GB)
  Receive Date: 20130807
  Receipt Date: 20130807
  Transmission Date: 20140515
  Serious: Yes (Other)
  Sender: FDA-Public Use
  Company Number: GB-PFIZER INC-2013229773

PATIENT
  Age: 66 Year
  Sex: Male

DRUGS (2)
  1. XALATAN [Suspect]
     Indication: GLAUCOMA
     Dosage: 1GTT 1X/DAILY (AT NIGHT)
     Route: 047
     Dates: start: 20130514
  2. SIMVASTATIN [Concomitant]
     Dosage: 40 MG, 1X/DAY AT NIGHT

REACTIONS (4)
  - Eye haemorrhage [Recovered/Resolved]
  - Ocular hyperaemia [Recovered/Resolved]
  - Eye pain [Recovered/Resolved]
  - Product formulation issue [Recovered/Resolved]
